FAERS Safety Report 4739193-5 (Version None)
Quarter: 2005Q3

REPORT INFORMATION
  Report Type: 
  Country: None (occurrence: None)
  Receive Date: 20050810
  Receipt Date: 20050518
  Transmission Date: 20060218
  Serious: No
  Sender: FDA-Public Use
  Company Number: US-GLAXOSMITHKLINE-A0559191A

PATIENT
  Age: 48 Year
  Sex: Male

DRUGS (3)
  1. PAXIL CR [Suspect]
     Dosage: 37.5MG PER DAY
     Route: 048
     Dates: end: 20050516
  2. WELLBUTRIN XL [Concomitant]
  3. ATENOLOL [Concomitant]

REACTIONS (4)
  - ANXIETY [None]
  - COLD SWEAT [None]
  - DRUG WITHDRAWAL SYNDROME [None]
  - NAUSEA [None]
